FAERS Safety Report 7127447-7 (Version None)
Quarter: 2010Q4

REPORT INFORMATION
  Report Type: 
  Country: None (occurrence: None)
  Receive Date: 20101129
  Receipt Date: 20091130
  Transmission Date: 20110411
  Serious: No
  Sender: FDA-Public Use
  Company Number: US-PFIZER INC-2009276087

PATIENT
  Sex: Female
  Weight: 110.7 kg

DRUGS (8)
  1. REVATIO [Suspect]
     Indication: PULMONARY HYPERTENSION
     Dosage: UNK
     Route: 048
  2. LETAIRIS [Concomitant]
     Dosage: 10 MG, UNK
  3. TEKTURNA [Concomitant]
     Dosage: 300 MG, UNK
  4. COUMADIN [Concomitant]
     Dosage: 7.5 MG, 1X/DAY
  5. ZAROXOLYN [Concomitant]
     Dosage: 5 MG, UNK
  6. LISINOPRIL [Concomitant]
     Dosage: 20 MG, UNK
  7. FUROSEMIDE [Concomitant]
     Dosage: 40 MG, UNK
  8. LIPITOR [Concomitant]
     Dosage: 20 MG, UNK

REACTIONS (1)
  - PHOTOPHOBIA [None]
